FAERS Safety Report 13725677 (Version 1)
Quarter: 2017Q3

REPORT INFORMATION
  Report Type: Spontaneous
  Country: US (occurrence: US)
  Receive Date: 20170706
  Receipt Date: 20170706
  Transmission Date: 20171127
  Serious: Yes (Death)
  Sender: FDA-Public Use
  Company Number: None

PATIENT
  Age: 77 Year
  Sex: Female
  Weight: 65.4 kg

DRUGS (2)
  1. AVASTIN [Suspect]
     Active Substance: BEVACIZUMAB
     Indication: ENDOMETRIAL CANCER METASTATIC
     Dosage: ?          OTHER DOSE:MG;OTHER FREQUENCY:EVERY OTHER WEEK;?
     Route: 041
     Dates: start: 20170615, end: 20170629
  2. DOXIL [Suspect]
     Active Substance: DOXORUBICIN HYDROCHLORIDE
     Indication: ENDOMETRIAL CANCER METASTATIC
     Dosage: ?          OTHER DOSE:MG;OTHER FREQUENCY:EVERY 2 WEEKS;?
     Route: 041
     Dates: start: 20170615, end: 20170629

REACTIONS (7)
  - Bradycardia [None]
  - Acute myocardial infarction [None]
  - Cardiomyopathy [None]
  - Cardiac failure congestive [None]
  - Acute kidney injury [None]
  - Pulmonary embolism [None]
  - Cardiac arrest [None]

NARRATIVE: CASE EVENT DATE: 20170702
